FAERS Safety Report 17681491 (Version 2)
Quarter: 2020Q2

REPORT INFORMATION
  Report Type: Spontaneous
  Country: US (occurrence: US)
  Receive Date: 20200417
  Receipt Date: 20200501
  Transmission Date: 20200714
  Serious: No
  Sender: FDA-Public Use
  Company Number: US-BAYER-2020-058160

PATIENT
  Age: 64 Year
  Sex: Female

DRUGS (1)
  1. CLIMARA PRO [Suspect]
     Active Substance: ESTRADIOL\LEVONORGESTREL
     Indication: MENOPAUSE
     Dosage: UNK
     Route: 062
     Dates: start: 2010

REACTIONS (4)
  - Headache [Recovered/Resolved]
  - Product adhesion issue [None]
  - Application site rash [Recovered/Resolved]
  - Product adhesion issue [None]

NARRATIVE: CASE EVENT DATE: 2020
